FAERS Safety Report 24253315 (Version 1)
Quarter: 2024Q3

REPORT INFORMATION
  Report Type: Spontaneous
  Country: US (occurrence: None)
  Receive Date: 20240826
  Receipt Date: 20240826
  Transmission Date: 20241016
  Serious: Yes (Life-Threatening, Hospitalization)
  Sender: Public
  Company Number: None

PATIENT
  Age: 72 Year
  Sex: Female
  Weight: 79.4 kg

DRUGS (1)
  1. ISOVUE [Suspect]
     Active Substance: IOPAMIDOL
     Indication: Imaging procedure
     Dosage: 100 ML ONCE INTRAVENOUS BOLUS ?
     Route: 040
     Dates: start: 20240816, end: 20240816

REACTIONS (2)
  - Anaphylactic reaction [None]
  - Contrast media allergy [None]

NARRATIVE: CASE EVENT DATE: 20240816
